FAERS Safety Report 4381975-6 (Version None)
Quarter: 2004Q2

REPORT INFORMATION
  Report Type: 
  Country: None (occurrence: None)
  Receive Date: 20040615
  Receipt Date: 20040524
  Transmission Date: 20050107
  Serious: Yes (Hospitalization)
  Sender: FDA-Public Use
  Company Number: WAES 0406PHL00001

PATIENT
  Age: 74 Year
  Sex: Female

DRUGS (7)
  1. COZAAR [Suspect]
     Route: 048
     Dates: start: 20020417
  2. AMIODARONE HYDROCHLORIDE [Concomitant]
  3. DIGOXIN [Concomitant]
  4. FLUTICASONE PROPIONATE (+) SALMETEROL XI [Concomitant]
  5. FUROSEMIDE [Concomitant]
  6. SPIRONOLACTONE [Concomitant]
  7. VITAMIN B COMPLEX CAP [Concomitant]

REACTIONS (1)
  - PNEUMONIA [None]
